FAERS Safety Report 20518034 (Version 2)
Quarter: 2022Q2

REPORT INFORMATION
  Report Type: Spontaneous
  Country: US (occurrence: None)
  Receive Date: 20220225
  Receipt Date: 20220412
  Transmission Date: 20220720
  Serious: No
  Sender: FDA-Public Use
  Company Number: 2022A049549

PATIENT
  Age: 75 Year
  Sex: Male
  Weight: 136.1 kg

DRUGS (1)
  1. BYDUREON BCISE [Suspect]
     Active Substance: EXENATIDE
     Indication: Type 2 diabetes mellitus
     Route: 065
     Dates: start: 2020

REACTIONS (7)
  - Blood glucose increased [Not Recovered/Not Resolved]
  - Product storage error [Unknown]
  - Incorrect dose administered by device [Unknown]
  - Wrong technique in device usage process [Unknown]
  - Intentional product misuse [Not Recovered/Not Resolved]
  - Drug ineffective [Unknown]
  - Device leakage [Unknown]

NARRATIVE: CASE EVENT DATE: 20200101
